FAERS Safety Report 18231774 (Version 2)
Quarter: 2021Q4

REPORT INFORMATION
  Report Type: Spontaneous
  Country: CA (occurrence: CA)
  Receive Date: 20200904
  Receipt Date: 20211228
  Transmission Date: 20220303
  Serious: Yes (Other)
  Sender: FDA-Public Use
  Company Number: None

PATIENT
  Age: 65 Year
  Sex: Female

DRUGS (8)
  1. QUETIAPINE FUMARATE [Suspect]
     Active Substance: QUETIAPINE FUMARATE
     Indication: Bipolar I disorder
     Route: 048
  2. PANTOPRAZOLE [Suspect]
     Active Substance: PANTOPRAZOLE
     Indication: Dyspepsia
     Route: 065
  3. LAMOTRIGINE [Suspect]
     Active Substance: LAMOTRIGINE
     Indication: Bipolar I disorder
     Route: 048
  4. CLONAZEPAM [Concomitant]
     Active Substance: CLONAZEPAM
  5. DIVALPROEX SODIUM [Concomitant]
     Active Substance: DIVALPROEX SODIUM
     Dosage: VALPROATE SEMISODIUM
  6. MOCLOBEMIDE [Concomitant]
     Active Substance: MOCLOBEMIDE
  7. PROPRANOLOL [Concomitant]
     Active Substance: PROPRANOLOL HYDROCHLORIDE
  8. VALPROIC ACID [Concomitant]
     Active Substance: VALPROIC ACID
     Indication: Mood altered

REACTIONS (7)
  - Balance disorder [Recovered/Resolved]
  - Blepharospasm [Recovered/Resolved]
  - Mass [Recovered/Resolved]
  - Psychotic disorder [Recovered/Resolved]
  - Quality of life decreased [Recovered/Resolved]
  - Drug ineffective [Unknown]
  - Off label use [Unknown]
